FAERS Safety Report 6140627-2 (Version None)
Quarter: 2009Q2

REPORT INFORMATION
  Report Type: 
  Country: None (occurrence: None)
  Receive Date: 20090402
  Receipt Date: 20090401
  Transmission Date: 20091009
  Serious: Yes (Death)
  Sender: FDA-Public Use
  Company Number: US-ASTRAZENECA-2009UW08177

PATIENT
  Age: 56 Year
  Sex: Female

DRUGS (1)
  1. SEROQUEL [Suspect]
     Indication: BIPOLAR I DISORDER
     Route: 048

REACTIONS (1)
  - DEATH [None]
